FAERS Safety Report 8597748-4 (Version None)
Quarter: 2012Q3

REPORT INFORMATION
  Report Type: 
  Country: None (occurrence: None)
  Receive Date: 20120816
  Receipt Date: 20120809
  Transmission Date: 20120928
  Serious: Yes (Hospitalization, Other)
  Sender: FDA-Public Use
  Company Number: PHEH2012US015913

PATIENT
  Sex: Female

DRUGS (6)
  1. HYDROXYZINE [Concomitant]
  2. TRILEPTAL [Suspect]
     Dates: start: 20060601, end: 20060803
  3. ACYCLOVIR [Concomitant]
  4. METFORMIN HYDROCHLORIDE [Concomitant]
  5. CLOTRIMAZOLE [Concomitant]
  6. TOPAMAX [Concomitant]

REACTIONS (37)
  - BIPOLAR II DISORDER [None]
  - SIMPLEX VIRUS TEST POSITIVE [None]
  - FLUSHING [None]
  - FATIGUE [None]
  - PHARYNGEAL OEDEMA [None]
  - VOMITING [None]
  - PRURITUS [None]
  - MIGRAINE [None]
  - DRY EYE [None]
  - RHINITIS ALLERGIC [None]
  - BACK PAIN [None]
  - DYSPNOEA [None]
  - URTICARIA [None]
  - BLINDNESS [None]
  - POLYCYSTIC OVARIES [None]
  - ABDOMINAL PAIN [None]
  - DEPRESSION [None]
  - STEVENS-JOHNSON SYNDROME [None]
  - PYREXIA [None]
  - ANGIOEDEMA [None]
  - DYSPEPSIA [None]
  - TRANSAMINASES INCREASED [None]
  - ASTHMA [None]
  - ANAPHYLACTIC REACTION [None]
  - CONJUNCTIVITIS [None]
  - VIRAL INFECTION [None]
  - DIARRHOEA [None]
  - LYMPHOCYTOSIS [None]
  - ANAEMIA [None]
  - THALASSAEMIA BETA [None]
  - GASTROINTESTINAL DISORDER [None]
  - BRONCHITIS [None]
  - EOSINOPHILIA [None]
  - LIP SWELLING [None]
  - RASH [None]
  - NAUSEA [None]
  - NASAL CONGESTION [None]
